FAERS Safety Report 17419267 (Version 5)
Quarter: 2021Q1

REPORT INFORMATION
  Report Type: Spontaneous
  Country: US (occurrence: US)
  Receive Date: 20200214
  Receipt Date: 20210316
  Transmission Date: 20210419
  Serious: No
  Sender: FDA-Public Use
  Company Number: US-VERTEX PHARMACEUTICALS-2020-002639

PATIENT
  Age: 40 Year
  Sex: Female

DRUGS (11)
  1. ZENPEP [Concomitant]
     Active Substance: PANCRELIPASE AMYLASE\PANCRELIPASE LIPASE\PANCRELIPASE PROTEASE
     Dosage: 20000 UNIT
  2. ADVAIR HFA [Concomitant]
     Active Substance: FLUTICASONE PROPIONATE\SALMETEROL XINAFOATE
  3. TRIKAFTA [Suspect]
     Active Substance: ELEXACAFTOR\IVACAFTOR\TEZACAFTOR
     Dosage: 2 ORANGE TABLET IN THE MORNING AND 1 BLUE TABLET IN THE EVENING
     Route: 048
     Dates: start: 202002
  4. FLORASTOR [LACTOBACILLUS ACIDOPHILUS] [Concomitant]
  5. TRIKAFTA [Suspect]
     Active Substance: ELEXACAFTOR\IVACAFTOR\TEZACAFTOR
     Indication: CYSTIC FIBROSIS
     Dosage: 1 ORANGE TABLET IN THE MORNING AND 1 BLUE TABLET IN THE EVENING
     Route: 048
     Dates: start: 20200128, end: 202002
  6. ETHAMBUTOL [Concomitant]
     Active Substance: ETHAMBUTOL HYDROCHLORIDE
     Dosage: 700 MG, QD
  7. PULMOZYME [Concomitant]
     Active Substance: DORNASE ALFA
  8. XOPENEX HFA [Concomitant]
     Active Substance: LEVALBUTEROL TARTRATE
  9. NYSTATIN. [Concomitant]
     Active Substance: NYSTATIN
     Dosage: 1000 UNITS /ML
  10. RIFAMPIN. [Concomitant]
     Active Substance: RIFAMPIN
  11. AZITHROMYCIN ANHYDROUS. [Concomitant]
     Active Substance: AZITHROMYCIN ANHYDROUS

REACTIONS (11)
  - Abdominal pain upper [Recovering/Resolving]
  - Nasopharyngitis [Recovered/Resolved]
  - Chest discomfort [Recovering/Resolving]
  - Dizziness [Not Recovered/Not Resolved]
  - Nausea [Recovering/Resolving]
  - Tremor [Recovering/Resolving]
  - Cough [Recovered/Resolved]
  - Blood glucose abnormal [Not Recovered/Not Resolved]
  - Eructation [Recovering/Resolving]
  - Abdominal discomfort [Recovering/Resolving]
  - Fatigue [Recovering/Resolving]

NARRATIVE: CASE EVENT DATE: 2020
